FAERS Safety Report 6567642-9 (Version None)
Quarter: 2010Q1

REPORT INFORMATION
  Report Type: 
  Country: None (occurrence: None)
  Receive Date: 20100202
  Receipt Date: 20100129
  Transmission Date: 20100710
  Serious: Yes (Hospitalization, Other)
  Sender: FDA-Public Use
  Company Number: IT-BRISTOL-MYERS SQUIBB COMPANY-14936447

PATIENT
  Age: 75 Year
  Sex: Female

DRUGS (3)
  1. COUMADIN [Suspect]
     Indication: PROPHYLAXIS
     Dosage: 1 DF=1 POSOLOGIC UNIT;INTERRUPTED ON 18DEC09.
     Dates: start: 20040101
  2. CONTRAMAL [Suspect]
     Indication: ARTHRALGIA
     Dosage: INTERRUPTED ON 18DEC09;RESTARTED AS 10DROPS/12HRS FOR 10 DAYS.
     Route: 048
     Dates: start: 20040101
  3. VOLTAREN [Concomitant]
     Indication: ARTHRALGIA
     Route: 061
     Dates: start: 20091214, end: 20091218

REACTIONS (6)
  - ANAEMIA [None]
  - FALL [None]
  - GASTRIC ULCER HAEMORRHAGE [None]
  - HAEMATOMA [None]
  - INTERNATIONAL NORMALISED RATIO INCREASED [None]
  - SUBCUTANEOUS HAEMATOMA [None]
